FAERS Safety Report 23814884 (Version 1)
Quarter: 2024Q2

REPORT INFORMATION
  Report Type: Spontaneous
  Country: US (occurrence: None)
  Receive Date: 20240502
  Receipt Date: 20240502
  Transmission Date: 20240716
  Serious: No
  Sender: FDA-Public Use
  Company Number: None

PATIENT
  Age: 84 Year
  Sex: Male
  Weight: 65.77 kg

DRUGS (21)
  1. TYVASO [Suspect]
     Active Substance: TREPROSTINIL
     Indication: Idiopathic pulmonary fibrosis
     Dosage: 12 PUFFS 4 X DAILY NEBULIZIER
     Route: 055
  2. TYVASO [Suspect]
     Active Substance: TREPROSTINIL
     Indication: Pulmonary arterial hypertension
  3. OFEV [Concomitant]
     Active Substance: NINTEDANIB
  4. ALBUTEROL SULFATE [Concomitant]
     Active Substance: ALBUTEROL SULFATE
  5. AMLODIPINE BESYLATE [Concomitant]
     Active Substance: AMLODIPINE BESYLATE
  6. ASPIRIN [Concomitant]
     Active Substance: ASPIRIN
  7. ATORVASTATIN [Concomitant]
     Active Substance: ATORVASTATIN
  8. AZELASTINE [Concomitant]
     Active Substance: AZELASTINE\AZELASTINE HYDROCHLORIDE
  9. FINASTERIDE [Concomitant]
     Active Substance: FINASTERIDE
  10. FLUTICASONE [Concomitant]
     Active Substance: FLUTICASONE
  11. LACTOBACILLUS RHAMNOSUS [Concomitant]
     Active Substance: LACTOBACILLUS RHAMNOSUS
  12. LOSARTAN [Concomitant]
     Active Substance: LOSARTAN
  13. VITAMINS [Concomitant]
     Active Substance: VITAMINS
  14. PREGABALIN [Concomitant]
     Active Substance: PREGABALIN
  15. SPIRONOLACTONE [Concomitant]
     Active Substance: SPIRONOLACTONE
  16. STIOLTO RESPIMAT [Concomitant]
     Active Substance: OLODATEROL HYDROCHLORIDE\TIOTROPIUM BROMIDE MONOHYDRATE
  17. TAMSULOSIN [Concomitant]
     Active Substance: TAMSULOSIN
  18. TRAMADOL [Concomitant]
     Active Substance: TRAMADOL\TRAMADOL HYDROCHLORIDE
  19. VITAMINS [Concomitant]
     Active Substance: VITAMINS
  20. TRAMADOL [Concomitant]
  21. NINTEDANIB [Concomitant]

REACTIONS (9)
  - Therapy interrupted [None]
  - Diarrhoea [None]
  - Cough [None]
  - Weight decreased [None]
  - Gait disturbance [None]
  - Fall [None]
  - Respiratory arrest [None]
  - Cardiac arrest [None]
  - Coma [None]

NARRATIVE: CASE EVENT DATE: 20230901
